FAERS Safety Report 17816727 (Version 9)
Quarter: 2022Q1

REPORT INFORMATION
  Report Type: Spontaneous
  Country: US (occurrence: US)
  Receive Date: 20200522
  Receipt Date: 20220321
  Transmission Date: 20220423
  Serious: Yes (Other)
  Sender: FDA-Public Use
  Company Number: US-PFIZER INC-2020203698

PATIENT
  Age: 75 Year
  Sex: Female

DRUGS (1)
  1. XELJANZ [Suspect]
     Active Substance: TOFACITINIB CITRATE
     Dosage: 5 MG

REACTIONS (10)
  - Knee arthroplasty [Unknown]
  - Multiple sclerosis [Unknown]
  - Rheumatoid arthritis [Unknown]
  - Rotator cuff syndrome [Unknown]
  - Arthropathy [Unknown]
  - Fibromyalgia [Unknown]
  - Dyspnoea [Unknown]
  - COVID-19 [Unknown]
  - Fatigue [Unknown]
  - Feeling abnormal [Unknown]
